FAERS Safety Report 18025008 (Version 2)
Quarter: 2020Q3

REPORT INFORMATION
  Report Type: Spontaneous
  Country: US (occurrence: US)
  Receive Date: 20200715
  Receipt Date: 20200813
  Transmission Date: 20201103
  Serious: Yes (Hospitalization)
  Sender: FDA-Public Use
  Company Number: US-CADILA HEALTHCARE LIMITED-US-ZYDUS-053485

PATIENT
  Sex: Female

DRUGS (1)
  1. BOSENTAN 125 MG TABLETS [Suspect]
     Active Substance: BOSENTAN
     Indication: PRODUCT USED FOR UNKNOWN INDICATION
     Dosage: UNK
     Route: 048

REACTIONS (1)
  - COVID-19 [Unknown]
